FAERS Safety Report 13765203 (Version 2)
Quarter: 2017Q3

REPORT INFORMATION
  Report Type: Spontaneous
  Country: CA (occurrence: CA)
  Receive Date: 20170718
  Receipt Date: 20170721
  Transmission Date: 20171127
  Serious: Yes (Hospitalization, Other)
  Sender: FDA-Public Use
  Company Number: CA-ASTRAZENECA-2017SE71420

PATIENT
  Sex: Male

DRUGS (11)
  1. PANTOLOC [Concomitant]
     Active Substance: PANTOPRAZOLE SODIUM
     Route: 048
  2. CRESTOR [Suspect]
     Active Substance: ROSUVASTATIN CALCIUM
     Route: 048
  3. LOMOTIL [Concomitant]
     Active Substance: ATROPINE SULFATE\DIPHENOXYLATE HYDROCHLORIDE
     Route: 065
     Dates: end: 201703
  4. CORTIMENT [Concomitant]
     Dosage: 9MG QD FOR 1 WEEK
     Route: 048
  5. INFLIXIMAB [Concomitant]
     Active Substance: INFLIXIMAB
     Indication: CROHN^S DISEASE
     Dosage: UNK/ MAINTENANCE EVERY 8 WEEKS
     Route: 042
  6. KEYTRUDA [Concomitant]
     Active Substance: PEMBROLIZUMAB
     Route: 065
     Dates: end: 20170328
  7. PREDNISONE. [Concomitant]
     Active Substance: PREDNISONE
     Dosage: 80MG FOR 1 WEEK THEN TAPER 1 TAB WEEKLY
     Route: 048
     Dates: start: 201703, end: 201706
  8. IMODIUM [Concomitant]
     Active Substance: LOPERAMIDE HYDROCHLORIDE
     Route: 065
     Dates: end: 201703
  9. IMURAN [Concomitant]
     Active Substance: AZATHIOPRINE
     Route: 065
     Dates: start: 2005, end: 2015
  10. KEPPRA [Concomitant]
     Active Substance: LEVETIRACETAM
     Route: 048
  11. DEXAMETHASONE. [Concomitant]
     Active Substance: DEXAMETHASONE
     Dosage: 4MG PO QD FOR 2 WEEKS THEN DECREASE 2MG PO FOR 1 WEEK, THEN 1 MG QD
     Route: 048
     Dates: start: 201601

REACTIONS (5)
  - Nerve compression [Unknown]
  - Brain oedema [Unknown]
  - Spinal fracture [Unknown]
  - Back pain [Unknown]
  - Neoplasm [Unknown]
